FAERS Safety Report 15942636 (Version 3)
Quarter: 2019Q1

REPORT INFORMATION
  Report Type: Spontaneous
  Country: US (occurrence: US)
  Receive Date: 20190209
  Receipt Date: 20190226
  Transmission Date: 20190417
  Serious: Yes (Hospitalization, Other)
  Sender: FDA-Public Use
  Company Number: US-ASTRAZENECA-2018SF26035

PATIENT
  Age: 448 Month
  Sex: Male
  Weight: 72 kg

DRUGS (31)
  1. NEXIUM [Suspect]
     Active Substance: ESOMEPRAZOLE MAGNESIUM
     Route: 048
  2. ALLOPURINOL. [Concomitant]
     Active Substance: ALLOPURINOL
  3. CALCITRIOL. [Concomitant]
     Active Substance: CALCITRIOL
  4. LISINOPRIL. [Concomitant]
     Active Substance: LISINOPRIL
  5. RITONAVIR. [Concomitant]
     Active Substance: RITONAVIR
  6. DOXAZOSIN [Concomitant]
     Active Substance: DOXAZOSIN\DOXAZOSIN MESYLATE
  7. TRIAMCINOLONE [Concomitant]
     Active Substance: TRIAMCINOLONE
  8. ZOFRAN [Concomitant]
     Active Substance: ONDANSETRON HYDROCHLORIDE
  9. PRILOSEC OTC [Suspect]
     Active Substance: OMEPRAZOLE MAGNESIUM
     Route: 048
     Dates: start: 20160414
  10. CEFDINIR. [Concomitant]
     Active Substance: CEFDINIR
  11. CALCITROL [Concomitant]
     Active Substance: CALCITRIOL
  12. ATORVASTATIN [Concomitant]
     Active Substance: ATORVASTATIN
  13. DARUNAVIR [Concomitant]
     Active Substance: DARUNAVIR
  14. SENSIPAR [Concomitant]
     Active Substance: CINACALCET HYDROCHLORIDE
  15. REMERON [Concomitant]
     Active Substance: MIRTAZAPINE
  16. CARVEDILOL. [Concomitant]
     Active Substance: CARVEDILOL
  17. ONDANSETRON [Concomitant]
     Active Substance: ONDANSETRON
  18. IBUPROFEN. [Concomitant]
     Active Substance: IBUPROFEN
  19. PRILOSEC OTC [Suspect]
     Active Substance: OMEPRAZOLE MAGNESIUM
     Route: 048
     Dates: start: 20080101, end: 20180625
  20. PREVACID [Suspect]
     Active Substance: LANSOPRAZOLE
     Route: 065
     Dates: start: 20080101, end: 20180625
  21. MARINOL [Concomitant]
     Active Substance: DRONABINOL
  22. TUMS [Concomitant]
     Active Substance: CALCIUM CARBONATE
  23. PRILOSEC [Suspect]
     Active Substance: OMEPRAZOLE MAGNESIUM
     Route: 048
     Dates: start: 20080101, end: 20180625
  24. ATORVASTATIN [Concomitant]
     Active Substance: ATORVASTATIN
  25. GENTAMYCIN [Concomitant]
     Active Substance: GENTAMICIN
  26. NITROSTAT [Concomitant]
     Active Substance: NITROGLYCERIN
  27. AMOXICILLIN. [Concomitant]
     Active Substance: AMOXICILLIN
  28. CEFDINIR. [Concomitant]
     Active Substance: CEFDINIR
  29. ASPIRIN. [Concomitant]
     Active Substance: ASPIRIN
  30. FOSRENOL [Concomitant]
     Active Substance: LANTHANUM CARBONATE
  31. TYLENOL [Concomitant]
     Active Substance: ACETAMINOPHEN

REACTIONS (6)
  - End stage renal disease [Unknown]
  - Nephrogenic anaemia [Unknown]
  - Renal injury [Unknown]
  - Chronic kidney disease-mineral and bone disorder [Unknown]
  - Chronic kidney disease [Unknown]
  - Hyperparathyroidism secondary [Unknown]

NARRATIVE: CASE EVENT DATE: 201302
